FAERS Safety Report 25286368 (Version 2)
Quarter: 2025Q2

REPORT INFORMATION
  Report Type: Report from Study
  Country: DE (occurrence: DE)
  Receive Date: 20250509
  Receipt Date: 20250515
  Transmission Date: 20250717
  Serious: Yes (Other)
  Sender: TAKEDA
  Company Number: DE-JNJFOC-20250507067

PATIENT
  Age: 45 Year
  Sex: Male
  Weight: 54.422 kg

DRUGS (10)
  1. BORTEZOMIB [Suspect]
     Active Substance: BORTEZOMIB
     Indication: Primary amyloidosis
     Dosage: 1.3 MILLIGRAM/SQ. METER, Q4WEEKS
     Dates: start: 20240419, end: 20240716
  2. BORTEZOMIB [Suspect]
     Active Substance: BORTEZOMIB
     Dosage: 1 MILLIGRAM/SQ. METER, Q4WEEKS
     Dates: start: 20240717, end: 20241006
  3. BORTEZOMIB [Suspect]
     Active Substance: BORTEZOMIB
     Dosage: 0.7 MILLIGRAM/SQ. METER, Q4WEEKS
     Dates: start: 20241007
  4. DARZALEX [Suspect]
     Active Substance: DARATUMUMAB
     Indication: Primary amyloidosis
     Dates: start: 20240419, end: 20240425
  5. DARZALEX [Suspect]
     Active Substance: DARATUMUMAB
     Dosage: 1800 MILLIGRAM, Q4WEEKS
     Dates: start: 20240619
  6. CYCLOPHOSPHAMIDE [Concomitant]
     Active Substance: CYCLOPHOSPHAMIDE
     Indication: Primary amyloidosis
     Dates: start: 20240419, end: 20241003
  7. CYCLOPHOSPHAMIDE [Concomitant]
     Active Substance: CYCLOPHOSPHAMIDE
     Dates: start: 20240419, end: 20241102
  8. DECADRON [Concomitant]
     Active Substance: DEXAMETHASONE
     Indication: Primary amyloidosis
     Dates: start: 20240419, end: 20241102
  9. DECADRON [Concomitant]
     Active Substance: DEXAMETHASONE
     Dates: start: 20240419, end: 20241102
  10. DOXORUBICIN [Concomitant]
     Active Substance: DOXORUBICIN
     Indication: Primary amyloidosis
     Dates: start: 20240913, end: 20241003

REACTIONS (2)
  - Polyneuropathy [Unknown]
  - Off label use [Unknown]
